FAERS Safety Report 8180386 (Version 2)
Quarter: 2013Q4

REPORT INFORMATION
  Report Type: Spontaneous
  Country: US (occurrence: US)
  Receive Date: 20111013
  Receipt Date: 20131016
  Transmission Date: 20140711
  Serious: Yes (Other)
  Sender: FDA-Public Use
  Company Number: US-ROCHE-1002361

PATIENT
  Sex: Male
  Weight: 83.99 kg

DRUGS (2)
  1. ACCUTANE [Suspect]
     Indication: ACNE
     Route: 065
     Dates: start: 1999, end: 2000
  2. AMNESTEEM [Suspect]
     Indication: ACNE
     Route: 065
     Dates: start: 200409, end: 200502

REACTIONS (3)
  - Colitis ulcerative [Unknown]
  - Anxiety [Unknown]
  - Irritable bowel syndrome [Unknown]
